FAERS Safety Report 8485949-5 (Version None)
Quarter: 2012Q3

REPORT INFORMATION
  Report Type: 
  Country: None (occurrence: None)
  Receive Date: 20120703
  Receipt Date: 20120622
  Transmission Date: 20120928
  Serious: Yes (Other)
  Sender: FDA-Public Use
  Company Number: US-VERTEX PHARMACEUTICALS INC.-AE-2012-009432

PATIENT
  Sex: Female
  Weight: 45.4 kg

DRUGS (3)
  1. INCIVEK [Suspect]
     Indication: HEPATITIS C
     Route: 048
  2. RIBAVIRIN [Concomitant]
  3. PEGASYS [Concomitant]
     Indication: HEPATITIS C

REACTIONS (8)
  - ANAEMIA [None]
  - DECREASED APPETITE [None]
  - ALOPECIA [None]
  - DYSGEUSIA [None]
  - FATIGUE [None]
  - RASH [None]
  - NAUSEA [None]
  - LOSS OF CONSCIOUSNESS [None]
